FAERS Safety Report 12267328 (Version 1)
Quarter: 2016Q2

REPORT INFORMATION
  Report Type: Spontaneous
  Country: US (occurrence: US)
  Receive Date: 20160414
  Receipt Date: 20160414
  Transmission Date: 20160815
  Serious: Yes (Other)
  Sender: FDA-Public Use
  Company Number: US-DRREDDYS-USA/USA/16/0078470

PATIENT
  Age: 39 Year
  Sex: Male

DRUGS (3)
  1. PLATINUM [Suspect]
     Active Substance: PLATINUM
     Indication: ANAPLASTIC LARGE-CELL LYMPHOMA
     Route: 065
  2. DEXAMETHASONE. [Suspect]
     Active Substance: DEXAMETHASONE
     Indication: ANAPLASTIC LARGE-CELL LYMPHOMA
     Route: 065
  3. GEMCITABINE [Suspect]
     Active Substance: GEMCITABINE\GEMCITABINE HYDROCHLORIDE
     Indication: ANAPLASTIC LARGE-CELL LYMPHOMA
     Route: 065

REACTIONS (4)
  - Vanishing bile duct syndrome [Not Recovered/Not Resolved]
  - Pruritus [Unknown]
  - Jaundice [Not Recovered/Not Resolved]
  - Condition aggravated [Not Recovered/Not Resolved]
